FAERS Safety Report 13482387 (Version 4)
Quarter: 2018Q1

REPORT INFORMATION
  Report Type: Report from Study
  Country: US (occurrence: US)
  Receive Date: 20170424
  Receipt Date: 20180123
  Transmission Date: 20180508
  Serious: No
  Sender: FDA-Public Use
  Company Number: US-AMGEN-USASP2017023915

PATIENT
  Age: 70 Year
  Sex: Female

DRUGS (2)
  1. REPATHA [Suspect]
     Active Substance: EVOLOCUMAB
     Indication: BLOOD CHOLESTEROL INCREASED
     Dosage: 140 MG, Q2WK
     Route: 065
     Dates: start: 201603
  2. REPATHA [Suspect]
     Active Substance: EVOLOCUMAB
     Indication: HYPERCHOLESTEROLAEMIA
     Dosage: 140 MG, Q3WK
     Route: 065

REACTIONS (28)
  - Oropharyngeal pain [Unknown]
  - Injection site mass [Unknown]
  - Skin irritation [Unknown]
  - Skin mass [Unknown]
  - Faeces discoloured [Unknown]
  - Upper-airway cough syndrome [Not Recovered/Not Resolved]
  - Malaise [Unknown]
  - Diarrhoea [Unknown]
  - Injection site discomfort [Unknown]
  - Productive cough [Unknown]
  - Cough [Unknown]
  - Injection site bruising [Unknown]
  - Visual impairment [Unknown]
  - Sleep disorder [Unknown]
  - Dyspnoea [Unknown]
  - Laboratory test abnormal [Unknown]
  - Off label use [Unknown]
  - Blood cholesterol increased [Unknown]
  - Sinus congestion [Unknown]
  - Rhinorrhoea [Unknown]
  - Throat irritation [Unknown]
  - Discomfort [Unknown]
  - Urticaria [Unknown]
  - Nausea [Unknown]
  - Injection site pain [Unknown]
  - Intentional product misuse [Unknown]
  - Underdose [Unknown]
  - Swelling [Unknown]

NARRATIVE: CASE EVENT DATE: 20161208
